FAERS Safety Report 18286123 (Version 3)
Quarter: 2020Q4

REPORT INFORMATION
  Report Type: Spontaneous
  Country: US (occurrence: US)
  Receive Date: 20200919
  Receipt Date: 20201126
  Transmission Date: 20210113
  Serious: No
  Sender: FDA-Public Use
  Company Number: US-SA-2020SA250111

PATIENT

DRUGS (2)
  1. SOLIQUA 100/33 [Suspect]
     Active Substance: INSULIN GLARGINE\LIXISENATIDE
     Indication: TYPE 2 DIABETES MELLITUS
     Dosage: 33 IU, QD
     Route: 065
     Dates: start: 202005, end: 2020
  2. LANTUS [Concomitant]
     Active Substance: INSULIN GLARGINE
     Dosage: 21-22 IU, QD (NIGHT)
     Route: 065

REACTIONS (7)
  - Heart rate decreased [Unknown]
  - Peripheral coldness [Unknown]
  - Weight decreased [Unknown]
  - Therapeutic product effect delayed [Unknown]
  - Blood glucose decreased [Unknown]
  - Dyspepsia [Unknown]
  - Injection site swelling [Unknown]

NARRATIVE: CASE EVENT DATE: 2020
